FAERS Safety Report 22355165 (Version 1)
Quarter: 2023Q2

REPORT INFORMATION
  Report Type: Other
  Country: TN (occurrence: None)
  Receive Date: 20230523
  Receipt Date: 20230523
  Transmission Date: 20230722
  Serious: Yes (Other)
  Sender: FDA-Public Use
  Company Number: TN-ROCHE-3353342

PATIENT
  Age: 80 Year
  Sex: Male

DRUGS (1)
  1. ATEZOLIZUMAB [Suspect]
     Active Substance: ATEZOLIZUMAB
     Indication: Small cell lung cancer
     Route: 065

REACTIONS (3)
  - Hypereosinophilic syndrome [Unknown]
  - Ischaemic stroke [Unknown]
  - Cardiomyopathy [Unknown]
